FAERS Safety Report 7264463 (Version 3)
Quarter: 2013Q1

REPORT INFORMATION
  Report Type: Report from Study
  Country: US (occurrence: US)
  Receive Date: 20100130
  Receipt Date: 20130131
  Transmission Date: 20140127
  Serious: Yes (Hospitalization, Other)
  Sender: FDA-Public Use
  Company Number: US-ABBOTT-09P-163-0594676-00

PATIENT
  Age: 74 Year
  Sex: Male
  Weight: 115.77 kg

DRUGS (6)
  1. HUMIRA 40 MG/0.8 ML PEN [Suspect]
     Indication: PSORIASIS
     Dates: start: 20081001, end: 2010
  2. ACLIVATE OINTMENT [Concomitant]
     Indication: PRODUCT USED FOR UNKNOWN INDICATION
  3. ULTIVATE OINTMENT [Concomitant]
     Indication: PRODUCT USED FOR UNKNOWN INDICATION
  4. NIACIN FLUSH FREE [Concomitant]
     Indication: PRODUCT USED FOR UNKNOWN INDICATION
  5. ALCLOMETASONE [Concomitant]
     Indication: PSORIASIS
  6. TACLONEX [Concomitant]
     Indication: PSORIASIS

REACTIONS (3)
  - Pancreatitis [Recovering/Resolving]
  - Psoriasis [Recovering/Resolving]
  - Drug effect decreased [Unknown]
